FAERS Safety Report 23726866 (Version 1)
Quarter: 2024Q2

REPORT INFORMATION
  Report Type: Spontaneous
  Country: CZ (occurrence: CZ)
  Receive Date: 20240410
  Receipt Date: 20240410
  Transmission Date: 20240716
  Serious: Yes (Other)
  Sender: FDA-Public Use
  Company Number: CZ-SUN PHARMACEUTICAL INDUSTRIES LTD-2024RR-441852

PATIENT
  Age: 48 Year
  Sex: Male
  Weight: 93 kg

DRUGS (12)
  1. GEMCITABINE [Suspect]
     Active Substance: GEMCITABINE
     Indication: Ductal adenocarcinoma of pancreas
     Dosage: UNK, 7 CYCLES
     Route: 065
     Dates: start: 202205, end: 202211
  2. OXALIPLATIN [Suspect]
     Active Substance: OXALIPLATIN
     Indication: Ductal adenocarcinoma of pancreas
     Dosage: UNK, 1X REGIMEN OF MFOLFOX6
     Route: 065
     Dates: start: 202106, end: 202112
  3. OXALIPLATIN [Suspect]
     Active Substance: OXALIPLATIN
     Dosage: UNK, 11X MFOLFORONOX
     Route: 065
     Dates: start: 202106, end: 202112
  4. LEUCOVORIN CALCIUM [Suspect]
     Active Substance: LEUCOVORIN CALCIUM
     Indication: Ductal adenocarcinoma of pancreas
     Dosage: UNK, 1X REGIMEN OF MFOLFOX6
     Route: 065
     Dates: start: 202106, end: 202112
  5. LEUCOVORIN CALCIUM [Suspect]
     Active Substance: LEUCOVORIN CALCIUM
     Dosage: UNK, 11X MFOLFIRINOX
     Route: 065
     Dates: start: 202106, end: 202112
  6. LEUCOVORIN CALCIUM [Suspect]
     Active Substance: LEUCOVORIN CALCIUM
     Dosage: UNK, 2ND LINE PALLIATIVE TREATMENT
     Route: 065
  7. IRINOTECAN [Suspect]
     Active Substance: IRINOTECAN
     Indication: Ductal adenocarcinoma of pancreas
     Dosage: UNK, 11X MFOLFIRINOX
     Route: 065
     Dates: start: 202106, end: 202112
  8. FLUOROURACIL [Suspect]
     Active Substance: FLUOROURACIL
     Indication: Ductal adenocarcinoma of pancreas
     Dosage: UNK, 1X REGIMEN OF MFOLFOX6
     Dates: start: 202106, end: 202112
  9. FLUOROURACIL [Suspect]
     Active Substance: FLUOROURACIL
     Dosage: UNK, 11X MFOLFIRINOX
     Route: 065
     Dates: start: 202106, end: 202112
  10. FLUOROURACIL [Suspect]
     Active Substance: FLUOROURACIL
     Dosage: UNK, 2ND LINE PALLIATIVE TREATMENT
     Route: 065
  11. PACLITAXEL [Suspect]
     Active Substance: PACLITAXEL
     Indication: Ductal adenocarcinoma of pancreas
     Dosage: UNK, 7 CYCLES
     Route: 065
     Dates: start: 202205, end: 202211
  12. IRINOTECAN [Suspect]
     Active Substance: IRINOTECAN
     Indication: Ductal adenocarcinoma of pancreas
     Dosage: UNK, 2ND LINE PALLIATIVE TREATMENT
     Route: 065

REACTIONS (9)
  - Therapeutic product effect incomplete [Unknown]
  - Neuropathy peripheral [Unknown]
  - Haematotoxicity [Unknown]
  - Neurotoxicity [Unknown]
  - Disease progression [Unknown]
  - Fatigue [Unknown]
  - Nausea [Unknown]
  - Abdominal pain [Unknown]
  - Disease recurrence [Unknown]
